FAERS Safety Report 20847240 (Version 1)
Quarter: 2022Q2

REPORT INFORMATION
  Report Type: Spontaneous
  Country: US (occurrence: US)
  Receive Date: 20220519
  Receipt Date: 20220519
  Transmission Date: 20220720
  Serious: No
  Sender: FDA-Public Use
  Company Number: CID000000000024211

PATIENT
  Age: 51 Year
  Sex: Female
  Weight: 82.55 kg

DRUGS (12)
  1. AJOVY [Suspect]
     Active Substance: FREMANEZUMAB-VFRM
     Indication: Migraine
     Dosage: 225/1.5 MG/ML
     Route: 065
  2. AJOVY [Suspect]
     Active Substance: FREMANEZUMAB-VFRM
  3. NURTEC ODT [Concomitant]
     Active Substance: RIMEGEPANT SULFATE
     Indication: Migraine
  4. TOPAMAX [Concomitant]
     Active Substance: TOPIRAMATE
     Indication: Migraine
  5. LYRICA [Concomitant]
     Active Substance: PREGABALIN
     Dosage: 450 MILLIGRAM DAILY; 225MG TWICE DAILY
     Route: 065
  6. CYMBALTA [Concomitant]
     Active Substance: DULOXETINE HYDROCHLORIDE
     Dosage: 120 MILLIGRAM DAILY; 60MG TWICE DAILY
     Route: 065
  7. CELEBREX [Concomitant]
     Active Substance: CELECOXIB
     Indication: Sleep disorder
     Dosage: 200 MILLIGRAM DAILY; 200MG ONCE DAILY
     Route: 065
  8. MEMANTINE [Concomitant]
     Active Substance: MEMANTINE
     Dosage: 10 MILLIGRAM DAILY; 5MG TWICE DAILY
     Route: 065
  9. OMEPRAZOLE [Concomitant]
     Active Substance: OMEPRAZOLE
     Dosage: 40 MILLIGRAM DAILY; 40MG AT BEDTIME
     Route: 065
  10. TRAZODONE [Concomitant]
     Active Substance: TRAZODONE HYDROCHLORIDE
     Indication: Sleep disorder
     Dosage: 150MG AT BEDTIME
     Route: 065
  11. LACTULOSE [Concomitant]
     Active Substance: LACTULOSE
     Dosage: 15ML TWICE DAILY
     Route: 065
  12. MOTEGRITY [Concomitant]
     Active Substance: PRUCALOPRIDE SUCCINATE
     Dosage: HALF MG TWICE DAILY
     Route: 065

REACTIONS (2)
  - Therapeutic response shortened [Unknown]
  - Product dose omission issue [Unknown]
